FAERS Safety Report 7208040-4 (Version None)
Quarter: 2011Q1

REPORT INFORMATION
  Report Type: 
  Country: None (occurrence: None)
  Receive Date: 20110104
  Receipt Date: 20110101
  Transmission Date: 20110831
  Serious: No
  Sender: FDA-Public Use
  Company Number: US-PFIZER INC-2011000041

PATIENT
  Sex: Female
  Weight: 65.76 kg

DRUGS (3)
  1. CHANTIX [Suspect]
     Indication: SMOKING CESSATION THERAPY
     Dosage: 1 MG, 2X/DAY
     Route: 048
     Dates: start: 20101225
  2. OXYMORPHONE [Concomitant]
     Dosage: 40 MG, 2X/DAY
  3. OXYCODONE [Concomitant]
     Dosage: 30 MG, 4X/DAY

REACTIONS (3)
  - NAUSEA [None]
  - VOMITING [None]
  - MALAISE [None]
